FAERS Safety Report 5834780-5 (Version None)
Quarter: 2008Q3

REPORT INFORMATION
  Report Type: 
  Country: None (occurrence: None)
  Receive Date: 20080804
  Receipt Date: 20080725
  Transmission Date: 20090109
  Serious: Yes (Hospitalization, Other)
  Sender: FDA-Public Use
  Company Number: 163-21880-08070400

PATIENT
  Age: 83 Year
  Sex: Male

DRUGS (1)
  1. REVLIMID [Suspect]
     Indication: MYELODYSPLASTIC SYNDROME
     Dosage: 10 MG, X 21 DAYS, ORAL
     Route: 048
     Dates: start: 20080609

REACTIONS (3)
  - BLINDNESS UNILATERAL [None]
  - PAPILLOEDEMA [None]
  - TEMPORAL ARTERITIS [None]
